FAERS Safety Report 5121901-5 (Version None)
Quarter: 2006Q4

REPORT INFORMATION
  Report Type: 
  Country: None (occurrence: None)
  Receive Date: 20061006
  Receipt Date: 20060925
  Transmission Date: 20070319
  Serious: Yes (Disabling, Other)
  Sender: FDA-Public Use
  Company Number: PHEH2006US12172

PATIENT
  Age: 67 Year
  Sex: Male
  Weight: 96.009 kg

DRUGS (6)
  1. LOPRESSOR [Suspect]
     Dosage: 50 MG, BID
     Route: 048
     Dates: start: 20060724, end: 20060725
  2. CLOPIDOGREL [Concomitant]
     Dosage: 4 CAPSULES
     Dates: start: 20060724, end: 20060724
  3. SYNTHROID [Concomitant]
  4. ALTACE [Concomitant]
  5. ASPIRIN [Concomitant]
  6. PLAVIX [Concomitant]

REACTIONS (2)
  - CARDIAC PACEMAKER INSERTION [None]
  - SINUS ARREST [None]
